FAERS Safety Report 23136034 (Version 1)
Quarter: 2023Q4

REPORT INFORMATION
  Report Type: Spontaneous
  Country: TW (occurrence: TW)
  Receive Date: 20231102
  Receipt Date: 20231102
  Transmission Date: 20240110
  Serious: Yes (Death, Other)
  Sender: FDA-Public Use
  Company Number: TW-AMGEN-TWNSP2023191263

PATIENT

DRUGS (4)
  1. BEVACIZUMAB [Suspect]
     Active Substance: BEVACIZUMAB
     Indication: Lung adenocarcinoma
     Dosage: UNK
     Route: 065
  2. ERLOTINIB [Concomitant]
     Active Substance: ERLOTINIB
     Dosage: UNK
     Route: 065
  3. AFATINIB [Concomitant]
     Active Substance: AFATINIB
     Dosage: UNK
     Route: 065
  4. ATEZOLIZUMAB [Concomitant]
     Active Substance: ATEZOLIZUMAB
     Dosage: UNK
     Route: 065

REACTIONS (4)
  - Death [Fatal]
  - Lung adenocarcinoma [Unknown]
  - Drug resistance [Unknown]
  - Gene mutation [Unknown]
